FAERS Safety Report 6505410-4 (Version None)
Quarter: 2009Q4

REPORT INFORMATION
  Report Type: 
  Country: None (occurrence: None)
  Receive Date: 20091217
  Receipt Date: 20091217
  Transmission Date: 20100525
  Serious: Yes (Other)
  Sender: FDA-Public Use
  Company Number: None

PATIENT
  Age: 71 Year
  Sex: Female
  Weight: 62.5964 kg

DRUGS (1)
  1. ZOCOR [Suspect]
     Indication: BLOOD CHOLESTEROL INCREASED
     Dosage: 40MG. -TWO TABS-. ONCE AT NIGHT PO
     Route: 048
     Dates: start: 20070107, end: 20090409

REACTIONS (4)
  - DRUG INEFFECTIVE [None]
  - MOVEMENT DISORDER [None]
  - MUSCLE TWITCHING [None]
  - MYALGIA [None]
